FAERS Safety Report 9698145 (Version 2)
Quarter: 2013Q4

REPORT INFORMATION
  Report Type: Spontaneous
  Country: IT (occurrence: None)
  Receive Date: 20131118
  Receipt Date: 20131122
  Transmission Date: 20140711
  Serious: Yes (Hospitalization, Other)
  Sender: FDA-Public Use
  Company Number: AUR-APL-2013-09556

PATIENT
  Age: 46 Year
  Sex: Female

DRUGS (19)
  1. MIRTAZAPINE [Suspect]
     Indication: RABIES
     Dosage: (1 DOSAGE FORMS,TOTAL)
     Route: 048
     Dates: start: 20131029, end: 20131029
  2. MIRTAZAPINE [Suspect]
     Indication: OFF LABEL USE
     Dosage: (1 DOSAGE FORMS,TOTAL)
     Route: 048
     Dates: start: 20131029, end: 20131029
  3. MIRTAZAPINE [Suspect]
     Dosage: (1 DOSAGE FORMS,TOTAL)
     Route: 048
     Dates: start: 20131029, end: 20131029
  4. FRONTAL (ALPRAZOLAM) [Suspect]
     Indication: RABIES
     Dosage: (1 DOSAGE FORMS,TOTAL)
     Route: 048
     Dates: start: 20131029, end: 20131029
  5. FRONTAL (ALPRAZOLAM) [Suspect]
     Indication: PERSONALITY DISORDER
     Dosage: (1 DOSAGE FORMS,TOTAL)
     Route: 048
     Dates: start: 20131029, end: 20131029
  6. FRONTAL (ALPRAZOLAM) [Suspect]
     Dosage: (1 DOSAGE FORMS,TOTAL)
     Route: 048
     Dates: start: 20131029, end: 20131029
  7. STILNOX [Suspect]
     Indication: RABIES
     Dosage: (1 DOSAGE FORMS,TOTAL)
     Route: 048
     Dates: start: 20131029, end: 20131029
  8. STILNOX [Suspect]
     Indication: PERSONALITY DISORDER
     Dosage: (1 DOSAGE FORMS,TOTAL)
     Route: 048
     Dates: start: 20131029, end: 20131029
  9. STILNOX [Suspect]
     Dosage: (1 DOSAGE FORMS,TOTAL)
     Route: 048
     Dates: start: 20131029, end: 20131029
  10. SONIREM [Suspect]
     Indication: RABIES
     Dosage: (1 DOSAGE FORMS,TOTAL)
     Route: 048
     Dates: start: 20131029, end: 20131029
  11. SONIREM [Suspect]
     Indication: PERSONALITY DISORDER
     Dosage: (1 DOSAGE FORMS,TOTAL)
     Route: 048
     Dates: start: 20131029, end: 20131029
  12. SONIREM [Suspect]
     Dosage: (1 DOSAGE FORMS,TOTAL)
     Route: 048
     Dates: start: 20131029, end: 20131029
  13. ZOLOFT (SERTRALINE HYDROCHLORIDE) [Suspect]
     Indication: RABIES
     Dosage: (1 DOSAGE FORMS,TOTAL)
     Route: 048
     Dates: start: 20131029, end: 20131029
  14. ZOLOFT (SERTRALINE HYDROCHLORIDE) [Suspect]
     Indication: PERSONALITY DISORDER
     Dosage: (1 DOSAGE FORMS,TOTAL)
     Route: 048
     Dates: start: 20131029, end: 20131029
  15. ZOLOFT (SERTRALINE HYDROCHLORIDE) [Suspect]
     Dosage: (1 DOSAGE FORMS,TOTAL)
     Route: 048
     Dates: start: 20131029, end: 20131029
  16. TRITTICO (TRAZODONE) [Suspect]
     Indication: RABIES
     Route: 048
     Dates: start: 20131029, end: 20131029
  17. TRITTICO (TRAZODONE) [Suspect]
     Indication: PERSONALITY DISORDER
     Route: 048
     Dates: start: 20131029, end: 20131029
  18. TRITTICO (TRAZODONE) [Suspect]
     Route: 048
     Dates: start: 20131029, end: 20131029
  19. RANIBEN (RANITIDINE HYDROCHLORIDE) [Concomitant]

REACTIONS (2)
  - Drug abuse [None]
  - Sopor [None]
